FAERS Safety Report 5219657-0 (Version None)
Quarter: 2006Q4

REPORT INFORMATION
  Report Type: 
  Country: None (occurrence: None)
  Receive Date: 20061201
  Receipt Date: 20060705
  Transmission Date: 20070319
  Serious: No
  Sender: FDA-Public Use
  Company Number: 2006PV016937

PATIENT
  Age: 61 Year
  Sex: Male
  Weight: 88.4514 kg

DRUGS (7)
  1. BYETTA [Suspect]
     Indication: DIABETES MELLITUS NON-INSULIN-DEPENDENT
     Dosage: SEE IMAGE
     Route: 058
     Dates: start: 20060901, end: 20061001
  2. BYETTA [Suspect]
     Indication: DIABETES MELLITUS NON-INSULIN-DEPENDENT
     Dosage: SEE IMAGE
     Route: 058
     Dates: start: 20061001, end: 20061001
  3. BYETTA [Suspect]
     Indication: DIABETES MELLITUS NON-INSULIN-DEPENDENT
     Dosage: SEE IMAGE
     Route: 058
     Dates: start: 20061001
  4. GLUCOPHAGE XR [Concomitant]
  5. AVANDIA [Concomitant]
  6. VYTORIN [Concomitant]
  7. BENICAR [Concomitant]

REACTIONS (3)
  - BLOOD CHOLESTEROL DECREASED [None]
  - BLOOD GLUCOSE DECREASED [None]
  - WEIGHT DECREASED [None]
